FAERS Safety Report 6150405-6 (Version None)
Quarter: 2009Q2

REPORT INFORMATION
  Report Type: 
  Country: None (occurrence: None)
  Receive Date: 20090409
  Receipt Date: 20090406
  Transmission Date: 20091009
  Serious: Yes (Other)
  Sender: FDA-Public Use
  Company Number: ES-BRISTOL-MYERS SQUIBB COMPANY-14577167

PATIENT
  Age: 33 Year
  Sex: Male

DRUGS (3)
  1. EFAVIRENZ [Suspect]
     Indication: HIV INFECTION
     Dates: start: 20030424, end: 20040203
  2. LAMIVUDINE [Suspect]
     Indication: HIV INFECTION
     Dates: start: 20030424, end: 20040203
  3. TENOFOVIR [Suspect]
     Indication: HIV INFECTION
     Dates: start: 20030424, end: 20040203

REACTIONS (3)
  - ALANINE AMINOTRANSFERASE INCREASED [None]
  - ASPARTATE AMINOTRANSFERASE INCREASED [None]
  - DRUG RESISTANCE [None]
